FAERS Safety Report 10231381 (Version 2)
Quarter: 2014Q3

REPORT INFORMATION
  Report Type: Spontaneous
  Country: US (occurrence: US)
  Receive Date: 20140611
  Receipt Date: 20140812
  Transmission Date: 20150326
  Serious: No
  Sender: FDA-Public Use
  Company Number: US-TEVA-481875USA

PATIENT
  Sex: Female

DRUGS (1)
  1. COPAXONE [Suspect]
     Active Substance: GLATIRAMER ACETATE
     Indication: MULTIPLE SCLEROSIS
     Dates: start: 2009, end: 2014

REACTIONS (4)
  - Musculoskeletal stiffness [Unknown]
  - Disturbance in attention [Unknown]
  - Muscle rigidity [Unknown]
  - Dysarthria [Unknown]

NARRATIVE: CASE EVENT DATE: 2014
